FAERS Safety Report 5714970-2 (Version None)
Quarter: 2008Q2

REPORT INFORMATION
  Report Type: 
  Country: None (occurrence: None)
  Receive Date: 20080423
  Receipt Date: 20080414
  Transmission Date: 20081010
  Serious: Yes (Other)
  Sender: FDA-Public Use
  Company Number: GB-SANOFI-SYNTHELABO-A01200804275

PATIENT
  Age: 47 Year
  Sex: Female
  Weight: 48 kg

DRUGS (3)
  1. ASPIRIN [Concomitant]
     Indication: DRUG USE FOR UNKNOWN INDICATION
     Route: 048
     Dates: start: 20070920
  2. PLAVIX [Suspect]
     Indication: AXILLARY VEIN THROMBOSIS
     Route: 048
     Dates: start: 20070930, end: 20071120
  3. WARFARIN SODIUM [Concomitant]
     Indication: AXILLARY VEIN THROMBOSIS
     Route: 048
     Dates: start: 20040101, end: 20070920

REACTIONS (1)
  - DEPRESSION SUICIDAL [None]
